FAERS Safety Report 5411260-2 (Version None)
Quarter: 2007Q3

REPORT INFORMATION
  Report Type: 
  Country: None (occurrence: None)
  Receive Date: 20070810
  Receipt Date: 20070801
  Transmission Date: 20080115
  Serious: Yes (Hospitalization)
  Sender: FDA-Public Use
  Company Number: CZ-ROCHE-462899

PATIENT
  Age: 57 Year
  Sex: Male

DRUGS (2)
  1. DACLIZUMAB [Suspect]
     Route: 042
     Dates: start: 20060701
  2. FK506 [Suspect]
     Route: 048
     Dates: start: 20060701

REACTIONS (2)
  - LIVER TRANSPLANT REJECTION [None]
  - PORTAL VEIN STENOSIS [None]
